FAERS Safety Report 6725557-7 (Version None)
Quarter: 2010Q2

REPORT INFORMATION
  Report Type: 
  Country: None (occurrence: None)
  Receive Date: 20100514
  Receipt Date: 20100505
  Transmission Date: 20101027
  Serious: Yes (Other)
  Sender: FDA-Public Use
  Company Number: US-PFIZER INC-2010057367

PATIENT
  Sex: Female
  Weight: 52.154 kg

DRUGS (1)
  1. CHANTIX [Suspect]
     Indication: SMOKING CESSATION THERAPY
     Dosage: 0.5 MG, 1X/DAY
     Route: 048
     Dates: start: 20100428

REACTIONS (7)
  - CRYING [None]
  - FEELING ABNORMAL [None]
  - FORMICATION [None]
  - IRRITABILITY [None]
  - NERVOUSNESS [None]
  - PALPITATIONS [None]
  - VOMITING [None]
